FAERS Safety Report 7771550-5 (Version None)
Quarter: 2011Q3

REPORT INFORMATION
  Report Type: 
  Country: None (occurrence: None)
  Receive Date: 20110922
  Receipt Date: 20110223
  Transmission Date: 20111222
  Serious: Yes (Other)
  Sender: FDA-Public Use
  Company Number: US-ASTRAZENECA-2007UW24996

PATIENT
  Age: 478 Month
  Sex: Male
  Weight: 117.9 kg

DRUGS (21)
  1. SEROQUEL [Suspect]
     Route: 048
     Dates: start: 20030807
  2. WELLBUTRIN [Concomitant]
     Dosage: 100-150 MG
     Dates: start: 20030919
  3. ELAVIL [Concomitant]
     Dosage: 25-100 MG
     Dates: start: 20040213
  4. ZYRTEC [Concomitant]
     Dates: start: 20050421
  5. ALBUTEROL [Concomitant]
     Dates: start: 20050421
  6. SEROQUEL [Suspect]
     Indication: MAJOR DEPRESSION
     Dosage: 100-200 MG
     Route: 048
     Dates: start: 20030101
  7. SEROQUEL [Suspect]
     Indication: INSOMNIA
     Dosage: 100-200 MG
     Route: 048
     Dates: start: 20030101
  8. SEROQUEL [Suspect]
     Indication: HALLUCINATION
     Dosage: 100-200 MG
     Route: 048
     Dates: start: 20030101
  9. SEROQUEL [Suspect]
     Route: 048
     Dates: start: 20030807
  10. SEROQUEL [Suspect]
     Route: 048
     Dates: start: 20030807
  11. SEROQUEL [Suspect]
     Dosage: 100-200 MG
     Route: 048
     Dates: start: 20030127
  12. SEROQUEL [Suspect]
     Dosage: 100-200 MG
     Route: 048
     Dates: start: 20030127
  13. WELLBUTRIN [Concomitant]
     Dates: start: 20030807
  14. SEROQUEL [Suspect]
     Dosage: 100-200 MG
     Route: 048
     Dates: start: 20030127
  15. ADVAIR DISKUS 100/50 [Concomitant]
     Dates: start: 20050421
  16. SEROQUEL [Suspect]
     Indication: BIPOLAR I DISORDER
     Dosage: 100-200 MG
     Route: 048
     Dates: start: 20030101
  17. SEROQUEL [Suspect]
     Dosage: 100-200 MG
     Route: 048
     Dates: start: 20030127
  18. SEROQUEL [Suspect]
     Route: 048
     Dates: start: 20030807
  19. PAXIL CR [Concomitant]
     Dosage: 12.5-150 MG
     Dates: start: 20030127
  20. PAXIL [Concomitant]
     Dosage: 25 MG Q.A.M AND 50 MG H.S
     Dates: start: 20030807
  21. CADUET [Concomitant]
     Dosage: 5/10 MG EVERYDAY
     Route: 048
     Dates: start: 20050418

REACTIONS (13)
  - MUSCULOSKELETAL PAIN [None]
  - DIZZINESS [None]
  - BRONCHITIS [None]
  - TYPE 2 DIABETES MELLITUS [None]
  - ERECTILE DYSFUNCTION [None]
  - WEIGHT INCREASED [None]
  - BLOOD CHOLESTEROL INCREASED [None]
  - BACK PAIN [None]
  - HYPERLIPIDAEMIA [None]
  - CHEST PAIN [None]
  - DYSPNOEA [None]
  - HYPERTENSION [None]
  - ABDOMINAL PAIN [None]
